FAERS Safety Report 23584224 (Version 1)
Quarter: 2024Q1

REPORT INFORMATION
  Report Type: Spontaneous
  Country: US (occurrence: US)
  Receive Date: 20240301
  Receipt Date: 20240301
  Transmission Date: 20240410
  Serious: Yes (Other)
  Sender: FDA-Public Use
  Company Number: US-ALKEM LABORATORIES LIMITED-US-ALKEM-2023-17193

PATIENT
  Age: 56 Year
  Sex: Male

DRUGS (8)
  1. LAMOTRIGINE [Suspect]
     Active Substance: LAMOTRIGINE
     Indication: Epilepsy
     Dosage: 300 MILLIGRAM, QD (DAILY)
     Route: 065
  2. LAMOTRIGINE [Suspect]
     Active Substance: LAMOTRIGINE
     Indication: Partial seizures
     Dosage: 100 MILLIGRAM, TID
     Route: 065
  3. LAMOTRIGINE [Suspect]
     Active Substance: LAMOTRIGINE
     Indication: Seizure
  4. ENALAPRIL [Suspect]
     Active Substance: ENALAPRIL
     Indication: Hypertension
     Dosage: 20 MILLIGRAM (QAM)
     Route: 065
  5. LANSOPRAZOLE [Suspect]
     Active Substance: LANSOPRAZOLE
     Indication: Gastrooesophageal reflux disease
     Dosage: 30 MILLIGRAM (QAM)
     Route: 065
  6. ESCITALOPRAM [Suspect]
     Active Substance: ESCITALOPRAM OXALATE
     Indication: Post-traumatic stress disorder
     Dosage: 20 MILLIGRAM, BID
     Route: 065
  7. ALPRAZOLAM [Suspect]
     Active Substance: ALPRAZOLAM
     Indication: Post-traumatic stress disorder
     Dosage: 1 MILLIGRAM, PRN (TID)
     Route: 065
  8. MIRTAZAPINE [Suspect]
     Active Substance: MIRTAZAPINE
     Indication: Post-traumatic stress disorder
     Dosage: 22.5 MILLIGRAM (QHS)
     Route: 065

REACTIONS (6)
  - Erectile dysfunction [Unknown]
  - Ejaculation failure [Unknown]
  - Sexual dysfunction [Unknown]
  - Loss of libido [Unknown]
  - Anorgasmia [Unknown]
  - Treatment noncompliance [Unknown]
